FAERS Safety Report 7026410-4 (Version None)
Quarter: 2010Q4

REPORT INFORMATION
  Report Type: 
  Country: None (occurrence: None)
  Receive Date: 20101004
  Receipt Date: 20100517
  Transmission Date: 20110411
  Serious: Yes (Other)
  Sender: FDA-Public Use
  Company Number: US-ASTRAZENECA-2009SE17761

PATIENT
  Sex: Female

DRUGS (12)
  1. SEROQUEL [Suspect]
     Dosage: 25 TO 100 MG
     Route: 048
     Dates: start: 20051007
  2. HYDROXYZINE [Concomitant]
     Dates: start: 20050915
  3. LEXAPRO [Concomitant]
     Dosage: 10 TO 20 MG
     Dates: start: 20050915
  4. PROPOXYPHEN [Concomitant]
     Dates: start: 20050919
  5. CLONAZEPAM [Concomitant]
     Dates: start: 20051008
  6. GUAIFENEX [Concomitant]
     Dates: start: 20051010
  7. ALBUTEROL [Concomitant]
     Dosage: 0.83 MG / 75 ML
     Dates: start: 20051011
  8. AVELOX [Concomitant]
     Dates: start: 20051011
  9. CARTIA XT [Concomitant]
     Dates: start: 20051016
  10. LIPITOR [Concomitant]
     Dates: start: 20051017
  11. ALPRAZOLAM [Concomitant]
     Dates: start: 20070522
  12. GLIPIZIDE [Concomitant]
     Dates: start: 20070724

REACTIONS (2)
  - DIABETIC GASTROPARESIS [None]
  - TYPE 2 DIABETES MELLITUS [None]
